FAERS Safety Report 9938428 (Version 2)
Quarter: 2014Q1

REPORT INFORMATION
  Report Type: Report from Study
  Country: US (occurrence: US)
  Receive Date: 20140303
  Receipt Date: 20140303
  Transmission Date: 20141002
  Serious: Yes (Hospitalization)
  Sender: FDA-Public Use
  Company Number: US-ABBVIE-12P-163-1002206-00

PATIENT
  Age: 28 Year
  Sex: Female

DRUGS (12)
  1. HUMIRA [Suspect]
     Indication: COLITIS ULCERATIVE
     Dates: start: 201207, end: 201209
  2. HUMIRA [Suspect]
     Dates: start: 201209
  3. AMOXICILLIN [Suspect]
     Indication: PRODUCT USED FOR UNKNOWN INDICATION
  4. PREDNISONE [Concomitant]
     Indication: PRODUCT USED FOR UNKNOWN INDICATION
     Dosage: 5MG DAILY
  5. PREDNISONE [Concomitant]
  6. APRISO [Concomitant]
     Indication: COLITIS ULCERATIVE
     Dosage: 4 - 0.375 GRAM CAPS TWICE DAILY
  7. MULTIVITAMIN [Concomitant]
     Indication: PRODUCT USED FOR UNKNOWN INDICATION
     Dosage: DAILY
  8. CALCIUM [Concomitant]
     Indication: PRODUCT USED FOR UNKNOWN INDICATION
  9. ALIGN [Concomitant]
     Indication: PRODUCT USED FOR UNKNOWN INDICATION
  10. MERCAPTOPURINE [Concomitant]
     Indication: PRODUCT USED FOR UNKNOWN INDICATION
     Dates: start: 201209
  11. MONESSA [Concomitant]
     Indication: CONTRACEPTION
  12. CHOLESTYRAMINE POWDER [Concomitant]
     Indication: PRODUCT USED FOR UNKNOWN INDICATION

REACTIONS (11)
  - Clostridium difficile infection [Recovered/Resolved]
  - Colitis ulcerative [Recovered/Resolved]
  - Injection site pain [Recovered/Resolved]
  - Wrong technique in drug usage process [Unknown]
  - Incorrect dose administered [Unknown]
  - Injection site reaction [Unknown]
  - Sinus congestion [Recovering/Resolving]
  - Abdominal discomfort [Recovering/Resolving]
  - Diarrhoea [Recovering/Resolving]
  - Sinusitis [Recovering/Resolving]
  - Paranasal sinus hypersecretion [Recovering/Resolving]
